FAERS Safety Report 11791498 (Version 1)
Quarter: 2015Q4

REPORT INFORMATION
  Report Type: Spontaneous
  Country: US (occurrence: None)
  Receive Date: 20151130
  Receipt Date: 20151130
  Transmission Date: 20160305
  Serious: No
  Sender: FDA-Public Use
  Company Number: None

PATIENT
  Sex: Male

DRUGS (9)
  1. PHENAZOPYRD [Concomitant]
  2. METFORMIN [Concomitant]
     Active Substance: METFORMIN HYDROCHLORIDE
  3. SSD [Concomitant]
     Active Substance: SILVER SULFADIAZINE
  4. CAPECITABINE 500MG TEVA [Suspect]
     Active Substance: CAPECITABINE
     Indication: RECTAL PROLAPSE
     Route: 048
     Dates: start: 20151024
  5. GLIMEPIRIDE. [Concomitant]
     Active Substance: GLIMEPIRIDE
  6. CAPECITABINE 150MG TEVA [Suspect]
     Active Substance: CAPECITABINE
     Indication: RECTAL PROLAPSE
     Route: 048
     Dates: start: 20151024
  7. LOVENOX [Concomitant]
     Active Substance: ENOXAPARIN SODIUM
  8. LANTUS [Concomitant]
     Active Substance: INSULIN GLARGINE
  9. TAMSULOSIN [Concomitant]
     Active Substance: TAMSULOSIN

REACTIONS (1)
  - Drug dose omission [None]
